FAERS Safety Report 4692918-X (Version None)
Quarter: 2005Q2

REPORT INFORMATION
  Report Type: 
  Country: None (occurrence: None)
  Receive Date: 20050615
  Receipt Date: 20050531
  Transmission Date: 20051028
  Serious: Yes (Hospitalization)
  Sender: FDA-Public Use
  Company Number: 2005-0008338

PATIENT
  Age: 75 Year
  Sex: Male
  Weight: 53 kg

DRUGS (5)
  1. VIREAD [Suspect]
     Indication: HIV INFECTION
     Dosage: 300 MG, 1 IN  1 D, ORAL
     Route: 048
     Dates: start: 20041001, end: 20050408
  2. ATAZANAVIR (ATAZANAVIR) [Suspect]
     Indication: HIV INFECTION
     Dosage: 300 MG, ORAL
     Route: 048
     Dates: start: 20041001, end: 20050408
  3. ZIDOVUDINE [Concomitant]
  4. RITONAVIR (RITONAVIR) [Concomitant]
  5. SULFAMETHOXAZOLE W/TRIMETHOPRIM (CO-TRIMOXAZOLE) [Concomitant]

REACTIONS (6)
  - ASTHENIA [None]
  - DRUG INTERACTION [None]
  - DRUG LEVEL INCREASED [None]
  - PRODUCTIVE COUGH [None]
  - RENAL FAILURE ACUTE [None]
  - VOMITING [None]
